FAERS Safety Report 19069468 (Version 2)
Quarter: 2021Q2

REPORT INFORMATION
  Report Type: Spontaneous
  Country: US (occurrence: US)
  Receive Date: 20210329
  Receipt Date: 20210401
  Transmission Date: 20210717
  Serious: Yes (Life-Threatening, Hospitalization, Other)
  Sender: FDA-Public Use
  Company Number: US-MYLANLABS-2021M1018641

PATIENT
  Age: 59 Year
  Sex: Female

DRUGS (2)
  1. OCTREOTIDE. [Suspect]
     Active Substance: OCTREOTIDE
     Indication: CARCINOID CRISIS
     Dosage: 500 MICROGRAM, HS
     Route: 065
  2. OCTREOTIDE. [Suspect]
     Active Substance: OCTREOTIDE
     Dosage: UNK
     Route: 065

REACTIONS (11)
  - Cardiomyopathy [Unknown]
  - Hyperhidrosis [Unknown]
  - Electrocardiogram ST segment elevation [Unknown]
  - Cardiac failure [Unknown]
  - Delirium [Unknown]
  - Acute pulmonary oedema [Unknown]
  - Tachycardia [Unknown]
  - Cardiogenic shock [Unknown]
  - Left ventricular end-diastolic pressure increased [Unknown]
  - Left ventricular dysfunction [Unknown]
  - Arteriospasm coronary [Unknown]
